FAERS Safety Report 7183030-9 (Version None)
Quarter: 2010Q4

REPORT INFORMATION
  Report Type: 
  Country: None (occurrence: None)
  Receive Date: 20101222
  Receipt Date: 20101206
  Transmission Date: 20110411
  Serious: No
  Sender: FDA-Public Use
  Company Number: US-PFIZER INC-2010165502

PATIENT
  Sex: Female
  Weight: 86.168 kg

DRUGS (3)
  1. CELEBREX [Suspect]
     Indication: DIABETIC NEUROPATHY
     Dosage: 200 MG, 1X/DAY
     Route: 048
     Dates: start: 20100601
  2. CIMETIDINE [Concomitant]
     Dosage: UNK
  3. METFORMIN [Concomitant]
     Indication: DIABETES MELLITUS
     Dosage: UNK

REACTIONS (1)
  - PAIN [None]
